FAERS Safety Report 4810897-9 (Version None)
Quarter: 2005Q4

REPORT INFORMATION
  Report Type: 
  Country: None (occurrence: None)
  Receive Date: 20051025
  Receipt Date: 20051013
  Transmission Date: 20060501
  Serious: Yes (Other)
  Sender: FDA-Public Use
  Company Number: 2005-133624-NL

PATIENT
  Age: 34 Year
  Sex: Female

DRUGS (1)
  1. NUVARING [Suspect]
     Indication: CONTRACEPTION
     Dosage: VAGINAL
     Route: 067
     Dates: start: 20050925

REACTIONS (11)
  - ABDOMINAL PAIN [None]
  - BACK PAIN [None]
  - COUGH [None]
  - HAEMORRHAGE [None]
  - PREGNANCY TEST URINE POSITIVE [None]
  - TENDERNESS [None]
  - THROMBOSIS [None]
  - UTERINE HAEMORRHAGE [None]
  - VAGINAL CONTRACEPTIVE DEVICE EXPELLED [None]
  - VAGINAL DISORDER [None]
  - VAGINAL HAEMORRHAGE [None]
